FAERS Safety Report 5443438-6 (Version None)
Quarter: 2007Q3

REPORT INFORMATION
  Report Type: 
  Country: None (occurrence: None)
  Receive Date: 20070905
  Receipt Date: 20070829
  Transmission Date: 20080115
  Serious: Yes (Hospitalization)
  Sender: FDA-Public Use
  Company Number: CA-ASTRAZENECA-2007UW20545

PATIENT
  Age: 58 Year
  Sex: Male
  Weight: 66.8 kg

DRUGS (9)
  1. ZOLADEX [Suspect]
     Indication: PROSTATE CANCER
     Route: 058
     Dates: start: 20070101
  2. LYRICA [Suspect]
     Indication: NEURALGIA
     Route: 048
     Dates: start: 20040101
  3. DIXATRIT [Suspect]
     Indication: HOT FLUSH
     Route: 048
     Dates: start: 20070201
  4. DIXATRIT [Suspect]
     Route: 048
  5. AGGRENOX [Concomitant]
     Indication: CEREBROVASCULAR ACCIDENT PROPHYLAXIS
     Route: 048
     Dates: start: 20060101
  6. TYLENOL W/ CODEINE NO. 3 [Concomitant]
     Indication: PAIN
     Dosage: 2 TABLETS AS NEEDED
     Route: 048
     Dates: start: 20040101
  7. PLAVIX [Concomitant]
     Indication: ANTICOAGULANT THERAPY
     Route: 048
     Dates: start: 20060101
  8. COTAZYM [Concomitant]
     Indication: APPETITE DISORDER
     Dosage: A HALF TO ONE HOUR BEFORE EATING
     Route: 048
     Dates: start: 20040101
  9. SENOKOT [Concomitant]
     Dosage: 3 TABLETS AS NEEDED
     Route: 048

REACTIONS (3)
  - DEPRESSION [None]
  - HOT FLUSH [None]
  - SYNCOPE [None]
